FAERS Safety Report 15627020 (Version 1)
Quarter: 2018Q4

REPORT INFORMATION
  Report Type: Spontaneous
  Country: US (occurrence: US)
  Receive Date: 20181116
  Receipt Date: 20181116
  Transmission Date: 20190205
  Serious: Yes (Disabling)
  Sender: FDA-Public Use
  Company Number: None

PATIENT
  Age: 35 Year
  Sex: Female
  Weight: 48.15 kg

DRUGS (1)
  1. FLAGYL [Suspect]
     Active Substance: METRONIDAZOLE\METRONIDAZOLE HYDROCHLORIDE
     Indication: GIARDIASIS
     Dosage: ?          QUANTITY:1 CAPSULE(S);?
     Route: 048
     Dates: start: 20180216, end: 20180222

REACTIONS (9)
  - Depression [None]
  - Dizziness [None]
  - Disturbance in attention [None]
  - Chills [None]
  - Abdominal discomfort [None]
  - Feeling abnormal [None]
  - Anxiety [None]
  - Diarrhoea [None]
  - Affect lability [None]

NARRATIVE: CASE EVENT DATE: 20180216
